FAERS Safety Report 8109343-1 (Version None)
Quarter: 2012Q1

REPORT INFORMATION
  Report Type: 
  Country: None (occurrence: None)
  Receive Date: 20120202
  Receipt Date: 20120127
  Transmission Date: 20120608
  Serious: Yes (Life-Threatening)
  Sender: FDA-Public Use
  Company Number: CHPA2012US002316

PATIENT
  Age: 58 Year
  Sex: Female

DRUGS (1)
  1. EXCEDRIN (MIGRAINE) [Suspect]
     Indication: HEADACHE
     Dosage: 1 TO 2 DF, ONCE PER DAY PRN
     Route: 048
     Dates: end: 20120101

REACTIONS (5)
  - UNDERDOSE [None]
  - FEELING ABNORMAL [None]
  - CHEST DISCOMFORT [None]
  - PAIN [None]
  - DYSPNOEA [None]
